FAERS Safety Report 18267474 (Version 1)
Quarter: 2020Q3

REPORT INFORMATION
  Report Type: Spontaneous
  Country: US (occurrence: US)
  Receive Date: 20200915
  Receipt Date: 20200915
  Transmission Date: 20201103
  Serious: Yes (Life-Threatening, Other)
  Sender: FDA-Public Use
  Company Number: US-PFIZER INC-2020353839

PATIENT
  Age: 53 Year
  Sex: Female

DRUGS (7)
  1. DOBUTAMINE HCL [Suspect]
     Active Substance: DOBUTAMINE HYDROCHLORIDE
     Dosage: 40 UG/KG (INCREASED EVERY 3 MIN TO 10, 20, 30, THEN 40 UG/ KG/MIN)
     Route: 042
  2. DOBUTAMINE HCL [Suspect]
     Active Substance: DOBUTAMINE HYDROCHLORIDE
     Dosage: 10 UG/KG (INCREASED EVERY 3 MIN TO 10, 20, 30, THEN 40 UG/ KG/MIN)
     Route: 042
  3. DOBUTAMINE HCL [Suspect]
     Active Substance: DOBUTAMINE HYDROCHLORIDE
     Dosage: 20 UG/KG (INCREASED EVERY 3 MIN TO 10, 20, 30, THEN 40 UG/ KG/MIN)
     Route: 042
  4. ACETAMINOPHEN. [Concomitant]
     Active Substance: ACETAMINOPHEN
     Indication: CHEST PAIN
     Dosage: UNK
  5. DOBUTAMINE HCL [Suspect]
     Active Substance: DOBUTAMINE HYDROCHLORIDE
     Dosage: 30 UG/KG (INCREASED EVERY 3 MIN TO 10, 20, 30, THEN 40 UG/ KG/MIN)
     Route: 042
  6. ATROPINE. [Concomitant]
     Active Substance: ATROPINE
     Indication: CHEST PAIN
     Dosage: 0.75 MG
  7. DOBUTAMINE HCL [Suspect]
     Active Substance: DOBUTAMINE HYDROCHLORIDE
     Indication: CHEST PAIN
     Dosage: 5 UG/KG (5 UG/KG/MIN)
     Route: 042

REACTIONS (1)
  - Arteriospasm coronary [Recovering/Resolving]
